FAERS Safety Report 6342452-6 (Version None)
Quarter: 2009Q3

REPORT INFORMATION
  Report Type: 
  Country: None (occurrence: None)
  Receive Date: 20090904
  Receipt Date: 20090904
  Transmission Date: 20100115
  Serious: Yes (Hospitalization)
  Sender: FDA-Public Use
  Company Number: None

PATIENT
  Age: 75 Year
  Sex: Female
  Weight: 55 kg

DRUGS (5)
  1. DIGOXIN [Suspect]
     Indication: ARRHYTHMIA
     Dosage: 0.125MG DAILY ORAL
     Route: 048
     Dates: start: 20090401, end: 20090402
  2. NEXIUM [Concomitant]
  3. PLAVIX [Concomitant]
  4. PREDNISONE [Concomitant]
  5. LOVENOX [Concomitant]

REACTIONS (2)
  - BRADYCARDIA [None]
  - ELECTROCARDIOGRAM ABNORMAL [None]
